FAERS Safety Report 8596206-0 (Version None)
Quarter: 2012Q3

REPORT INFORMATION
  Report Type: 
  Country: None (occurrence: None)
  Receive Date: 20120815
  Receipt Date: 20120809
  Transmission Date: 20120928
  Serious: Yes (Hospitalization)
  Sender: FDA-Public Use
  Company Number: JP-GLAXOSMITHKLINE-B0757086A

PATIENT
  Age: 73 Year
  Sex: Female

DRUGS (2)
  1. VALTREX [Suspect]
     Indication: HERPES ZOSTER
     Dosage: 3000MG PER DAY
     Route: 048
     Dates: start: 20111008, end: 20111012
  2. UNKNOWN DRUG [Suspect]
     Route: 065

REACTIONS (3)
  - DYSURIA [None]
  - RENAL FAILURE ACUTE [None]
  - ASTHENIA [None]
